FAERS Safety Report 25339600 (Version 2)
Quarter: 2025Q2

REPORT INFORMATION
  Report Type: Report from Study
  Country: AU (occurrence: AU)
  Receive Date: 20250521
  Receipt Date: 20250530
  Transmission Date: 20250717
  Serious: No
  Sender: SAMSUNG BIOEPIS
  Company Number: AU-SAMSUNG BIOEPIS-SB-2025-13075

PATIENT
  Age: 31 Year
  Sex: Female

DRUGS (1)
  1. HADLIMA [Suspect]
     Active Substance: ADALIMUMAB-BWWD
     Indication: Rheumatoid arthritis
     Dosage: 40 MG/0.4 ML;
     Dates: start: 20250401

REACTIONS (6)
  - Wrong technique in product usage process [Unknown]
  - Product use complaint [Unknown]
  - Incorrect dose administered [Unknown]
  - Piloerection [Not Recovered/Not Resolved]
  - Rash pruritic [Recovered/Resolved]
  - Chills [Not Recovered/Not Resolved]

NARRATIVE: CASE EVENT DATE: 20250401
